FAERS Safety Report 7241055-9 (Version None)
Quarter: 2011Q1

REPORT INFORMATION
  Report Type: 
  Country: None (occurrence: None)
  Receive Date: 20110124
  Receipt Date: 20110112
  Transmission Date: 20110831
  Serious: Yes (Death)
  Sender: FDA-Public Use
  Company Number: FR-SANOFI-AVENTIS-2010SA069941

PATIENT
  Age: 58 Year
  Sex: Female
  Weight: 120 kg

DRUGS (8)
  1. MULTAQ [Suspect]
     Indication: ATRIAL FIBRILLATION
     Route: 048
     Dates: start: 20101108
  2. LODOZ [Concomitant]
     Route: 048
  3. XANAX [Concomitant]
     Route: 048
  4. COVERSYL /FRA/ [Concomitant]
     Route: 048
  5. LEVOTHYROX [Concomitant]
     Indication: HYPOTHYROIDISM
     Route: 048
  6. PREVISCAN [Concomitant]
     Indication: ATRIAL FIBRILLATION
     Route: 048
  7. ONE-ALPHA [Concomitant]
     Route: 048
  8. AMIODARONE [Concomitant]
     Indication: ATRIAL FIBRILLATION
     Route: 048
     Dates: end: 20101107

REACTIONS (5)
  - LEFT VENTRICULAR FAILURE [None]
  - CONDITION AGGRAVATED [None]
  - DYSPNOEA [None]
  - ACUTE RESPIRATORY FAILURE [None]
  - CARDIO-RESPIRATORY ARREST [None]
